FAERS Safety Report 5080488-6 (Version None)
Quarter: 2006Q3

REPORT INFORMATION
  Report Type: 
  Country: None (occurrence: None)
  Receive Date: 20060809
  Receipt Date: 20060724
  Transmission Date: 20061208
  Serious: Yes (Other)
  Sender: FDA-Public Use
  Company Number: 2006AL001975

PATIENT
  Sex: Female

DRUGS (1)
  1. DICLOFENAC [Suspect]
     Dosage: 50 MG;PO
     Route: 048

REACTIONS (1)
  - ANAPHYLACTIC REACTION [None]
